FAERS Safety Report 8193299-X (Version None)
Quarter: 2012Q1

REPORT INFORMATION
  Report Type: 
  Country: None (occurrence: None)
  Receive Date: 20120308
  Receipt Date: 20120301
  Transmission Date: 20120608
  Serious: Yes (Hospitalization)
  Sender: FDA-Public Use
  Company Number: US-CELGENEUS-163-21880-10012058

PATIENT
  Sex: Male
  Weight: 97.383 kg

DRUGS (13)
  1. REVLIMID [Suspect]
     Indication: MULTIPLE MYELOMA
     Dosage: 10 MILLIGRAM
     Route: 048
     Dates: start: 20100107, end: 20100120
  2. ZETIA [Concomitant]
     Dosage: 10 MILLIGRAM
     Route: 048
     Dates: start: 20100127
  3. AVELOX [Concomitant]
     Route: 065
     Dates: start: 20100101
  4. IBUPROFEN [Concomitant]
     Route: 065
  5. ASPIRIN [Concomitant]
     Dosage: 81 MILLIGRAM
     Route: 055
     Dates: start: 20100127
  6. VALTREX [Concomitant]
     Route: 065
  7. CRESTOR [Concomitant]
     Route: 065
  8. CYMBALTA [Concomitant]
     Route: 065
  9. TRILIPIX [Concomitant]
     Route: 065
  10. DECADRON [Suspect]
     Indication: MULTIPLE MYELOMA
     Dosage: 40 MILLIGRAM
     Route: 041
     Dates: start: 20100105, end: 20100114
  11. VELCADE [Suspect]
     Indication: MULTIPLE MYELOMA
     Dosage: 2.2 MILLIGRAM
     Route: 065
     Dates: start: 20100105, end: 20100114
  12. DOXIL [Suspect]
     Indication: MULTIPLE MYELOMA
     Dosage: 9 MILLIGRAM
     Route: 065
     Dates: start: 20100105, end: 20100114
  13. SOTALOL HCL [Concomitant]
     Route: 065

REACTIONS (2)
  - PNEUMONIA [None]
  - RESPIRATORY FAILURE [None]
